FAERS Safety Report 12218832 (Version 1)
Quarter: 2016Q1

REPORT INFORMATION
  Report Type: Spontaneous
  Country: US (occurrence: US)
  Receive Date: 20160329
  Receipt Date: 20160329
  Transmission Date: 20160526
  Serious: No
  Sender: FDA-Public Use
  Company Number: CHPA2016US003566

PATIENT
  Age: 62 Year
  Sex: Female

DRUGS (2)
  1. VOLTAREN [Suspect]
     Active Substance: DICLOFENAC SODIUM
     Indication: CYST
     Dosage: DIME SIZE, ONCE/SINGLE
     Route: 061
     Dates: start: 20160319, end: 20160319
  2. VOLTAREN [Suspect]
     Active Substance: DICLOFENAC SODIUM
     Indication: CARPAL TUNNEL SYNDROME

REACTIONS (5)
  - Inappropriate schedule of drug administration [Unknown]
  - Drug dispensed to wrong patient [Unknown]
  - Product use issue [Unknown]
  - Therapeutic response unexpected [Unknown]
  - Wrong technique in product usage process [Unknown]

NARRATIVE: CASE EVENT DATE: 20160319
